FAERS Safety Report 9926033 (Version 1)
Quarter: 2014Q1

REPORT INFORMATION
  Report Type: Spontaneous
  Country: US (occurrence: US)
  Receive Date: 20140226
  Receipt Date: 20140226
  Transmission Date: 20141002
  Serious: Yes (Other)
  Sender: FDA-Public Use
  Company Number: US-CELGENEUS-163-21880-14023497

PATIENT
  Sex: Female
  Weight: 79.9 kg

DRUGS (20)
  1. REVLIMID [Suspect]
     Indication: PLASMA CELL MYELOMA
     Dosage: 10 MILLIGRAM
     Route: 048
     Dates: start: 200811
  2. REVLIMID [Suspect]
     Dosage: 10 MILLIGRAM
     Route: 048
     Dates: start: 201009
  3. REVLIMID [Suspect]
     Dosage: 5 MILLIGRAM
     Route: 048
     Dates: start: 20131218
  4. CITALOPRAM-HYDROBROMIDE [Concomitant]
     Indication: PRODUCT USED FOR UNKNOWN INDICATION
     Dosage: 20 MILLIGRAM
     Route: 048
     Dates: start: 20100513
  5. LOMOTIL [Concomitant]
     Indication: DIARRHOEA
     Dosage: 2.5-0.025MG
     Route: 048
     Dates: start: 20130731
  6. ACIDOPHILUS [Concomitant]
     Indication: PRODUCT USED FOR UNKNOWN INDICATION
     Route: 048
     Dates: start: 20130115
  7. EC ASPIRIN [Concomitant]
     Indication: PRODUCT USED FOR UNKNOWN INDICATION
     Route: 048
     Dates: start: 20081017
  8. BETIMOL [Concomitant]
     Indication: PRODUCT USED FOR UNKNOWN INDICATION
     Dosage: 0.5%
     Route: 047
     Dates: start: 20130410
  9. CALCIUM WITH VITAMIN D [Concomitant]
     Indication: PRODUCT USED FOR UNKNOWN INDICATION
     Dosage: 600-200MG
     Route: 065
     Dates: start: 20081017
  10. CARBIDOPA LEVODOPA [Concomitant]
     Indication: PRODUCT USED FOR UNKNOWN INDICATION
     Dosage: 25-100MG
     Route: 048
     Dates: start: 20131024
  11. DOXYCYCLINE HYCLATE [Concomitant]
     Indication: PRODUCT USED FOR UNKNOWN INDICATION
     Dosage: 200 MILLIGRAM
     Route: 048
     Dates: start: 20131203
  12. GABAPENTIN [Concomitant]
     Indication: PRODUCT USED FOR UNKNOWN INDICATION
     Dosage: 300 MILLIGRAM
     Route: 048
     Dates: start: 20100513
  13. IMODIUM A-D [Concomitant]
     Indication: DIARRHOEA
     Route: 048
     Dates: start: 20130115
  14. MULTI-DAY [Concomitant]
     Indication: PRODUCT USED FOR UNKNOWN INDICATION
     Route: 065
     Dates: start: 20081017
  15. NITROFURANTOIN MONOHYDRATE/MACROCRYSTALS [Concomitant]
     Indication: PRODUCT USED FOR UNKNOWN INDICATION
     Dosage: 50 MILLIGRAM
     Route: 048
     Dates: start: 20131206
  16. PRILOSEC [Concomitant]
     Indication: PRODUCT USED FOR UNKNOWN INDICATION
     Dosage: 20 MILLIGRAM
     Route: 048
     Dates: end: 20130115
  17. VITAMIN B12 [Concomitant]
     Indication: PRODUCT USED FOR UNKNOWN INDICATION
     Dosage: 1000 MICROGRAM
     Route: 048
     Dates: start: 20110107
  18. VITAMIN D [Concomitant]
     Indication: PRODUCT USED FOR UNKNOWN INDICATION
     Dosage: 4000 IU (INTERNATIONAL UNIT)
     Route: 048
     Dates: start: 20111123
  19. ALEVE [Concomitant]
     Indication: HEADACHE
     Route: 065
  20. KLOR CON [Concomitant]
     Indication: PRODUCT USED FOR UNKNOWN INDICATION
     Dosage: 16 MILLIEQUIVALENTS

REACTIONS (3)
  - Bone marrow failure [Unknown]
  - Parkinson^s disease [Unknown]
  - Gastrointestinal toxicity [Unknown]
